FAERS Safety Report 9200670 (Version 5)
Quarter: 2017Q4

REPORT INFORMATION
  Report Type: Spontaneous
  Country: GB (occurrence: GB)
  Receive Date: 20130331
  Receipt Date: 20171219
  Transmission Date: 20180321
  Serious: Yes (Disabling, Other)
  Sender: FDA-Public Use
  Company Number: GB-TEVA-393896ISR

PATIENT
  Age: 73 Year
  Sex: Male
  Weight: 80.9 kg

DRUGS (8)
  1. DAKTARIN [Interacting]
     Active Substance: MICONAZOLE NITRATE
     Indication: ORAL FUNGAL INFECTION
     Dosage: APPLIED TO INFECTED AREA AS PRESCRIBED FOR SEVEN DAYS.
     Route: 061
     Dates: start: 20120713, end: 20120720
  2. ASPIRIN. [Concomitant]
     Active Substance: ASPIRIN
     Dosage: 75 MILLIGRAM DAILY;
     Dates: end: 20121216
  3. ATENOLOL. [Concomitant]
     Active Substance: ATENOLOL
     Dosage: 50 MILLIGRAM DAILY;
  4. BENDROFLUMETHIAZIDE [Concomitant]
     Active Substance: BENDROFLUMETHIAZIDE
     Dosage: 2.5 MILLIGRAM DAILY;
  5. RAMIPRIL. [Concomitant]
     Active Substance: RAMIPRIL
     Dosage: 10 MILLIGRAM DAILY;
  6. SIMVASTATIN. [Suspect]
     Active Substance: SIMVASTATIN
  7. CLOPIDOGREL [Concomitant]
     Active Substance: CLOPIDOGREL BISULFATE
     Dosage: 75 MILLIGRAM DAILY;
     Dates: start: 20121216
  8. DIPYRIDAMOLE. [Concomitant]
     Active Substance: DIPYRIDAMOLE
     Dosage: 400 MILLIGRAM DAILY;
     Dates: end: 20121215

REACTIONS (7)
  - Fungal infection [Unknown]
  - Mouth ulceration [Unknown]
  - Eyelid ptosis [Not Recovered/Not Resolved]
  - Cerebrovascular accident [Unknown]
  - Labelled drug-drug interaction medication error [Unknown]
  - Myasthenia gravis [Not Recovered/Not Resolved]
  - Ocular myasthenia [Not Recovered/Not Resolved]

NARRATIVE: CASE EVENT DATE: 20120807
